FAERS Safety Report 5339016-X (Version None)
Quarter: 2007Q2

REPORT INFORMATION
  Report Type: 
  Country: None (occurrence: None)
  Receive Date: 20070525
  Receipt Date: 20070514
  Transmission Date: 20071010
  Serious: Yes (Hospitalization)
  Sender: FDA-Public Use
  Company Number: L07-ESP-01966-01

PATIENT
  Age: 44 Year
  Sex: Female

DRUGS (1)
  1. ESCITALOPRAM OXALATE [Suspect]
     Indication: DEPRESSIVE SYMPTOM
     Dosage: 10 MG QD

REACTIONS (3)
  - DYSTONIA [None]
  - MOVEMENT DISORDER [None]
  - TORTICOLLIS [None]
